FAERS Safety Report 9564143 (Version 2)
Quarter: 2013Q4

REPORT INFORMATION
  Report Type: Report from Study
  Country: US (occurrence: US)
  Receive Date: 20130929
  Receipt Date: 20131003
  Transmission Date: 20140711
  Serious: Yes (Hospitalization)
  Sender: FDA-Public Use
  Company Number: US-009507513-1309USA010787

PATIENT
  Age: 43 Year
  Sex: Female
  Weight: 56.69 kg

DRUGS (9)
  1. ZOLINZA [Suspect]
     Indication: BREAST CANCER METASTATIC
     Dosage: 400 MG, QD
     Route: 048
     Dates: start: 20130912, end: 20130915
  2. PROVENTIL [Concomitant]
     Dosage: 90 MCQ/INH
  3. ATENOLOL [Concomitant]
     Dosage: 25 MG, QDL
  4. LORAZEPAM [Concomitant]
     Dosage: 0.5 MG, BID
  5. ZOLPIDEM TARTRATE [Concomitant]
     Dosage: 10 MG, QPM
  6. OXYCODONE [Concomitant]
     Dosage: 10 MG, Q4H
  7. SCOPOLAMINE [Concomitant]
  8. CLARITIN [Concomitant]
     Dosage: 10 MG, QD
     Route: 048
  9. LETROZOLE [Concomitant]
     Dosage: 2.5 MG, QD

REACTIONS (2)
  - Hepatic function abnormal [Unknown]
  - Hepatic encephalopathy [Unknown]
